FAERS Safety Report 15848700 (Version 1)
Quarter: 2019Q1

REPORT INFORMATION
  Report Type: Report from Study
  Country: US (occurrence: US)
  Receive Date: 20190121
  Receipt Date: 20190121
  Transmission Date: 20190417
  Serious: No
  Sender: FDA-Public Use
  Company Number: US-AGIOS-1901US00358

PATIENT

DRUGS (1)
  1. TIBSOVO [Suspect]
     Active Substance: IVOSIDENIB
     Indication: ACUTE MYELOID LEUKAEMIA
     Dosage: 250 MILLIGRAMS, 2 TABLETS (500MG) DAILY
     Route: 048
     Dates: start: 201809, end: 20181220

REACTIONS (1)
  - Disease progression [Not Recovered/Not Resolved]
